FAERS Safety Report 9723346 (Version 1)
Quarter: 2013Q4

REPORT INFORMATION
  Report Type: Spontaneous
  Country: US (occurrence: US)
  Receive Date: 20131202
  Receipt Date: 20131202
  Transmission Date: 20140711
  Serious: No
  Sender: FDA-Public Use
  Company Number: US-GLAXOSMITHKLINE-A1015876A

PATIENT
  Age: 51 Year
  Sex: Female
  Weight: 59.5 kg

DRUGS (2)
  1. FLONASE [Suspect]
     Indication: RHINITIS
     Dosage: 2SPR PER DAY
     Route: 045
  2. NO CONCURRENT MEDICATION [Concomitant]

REACTIONS (3)
  - Burning sensation [Recovered/Resolved]
  - Influenza like illness [Unknown]
  - Product quality issue [Unknown]
